FAERS Safety Report 17078896 (Version 1)
Quarter: 2019Q4

REPORT INFORMATION
  Report Type: Spontaneous
  Country: US (occurrence: US)
  Receive Date: 20191127
  Receipt Date: 20191127
  Transmission Date: 20200122
  Serious: No
  Sender: FDA-Public Use
  Company Number: US-JNJFOC-20191138434

PATIENT
  Sex: Female
  Weight: 44.49 kg

DRUGS (1)
  1. WOMENS ROGAINE [Suspect]
     Active Substance: MINOXIDIL
     Indication: ALOPECIA
     Dosage: TO THE MARK ON THE TUBE
     Route: 065

REACTIONS (1)
  - Alopecia [Not Recovered/Not Resolved]
